FAERS Safety Report 14966247 (Version 1)
Quarter: 2018Q2

REPORT INFORMATION
  Report Type: Spontaneous
  Country: FR (occurrence: FR)
  Receive Date: 20180603
  Receipt Date: 20180603
  Transmission Date: 20180711
  Serious: Yes (Hospitalization)
  Sender: FDA-Public Use
  Company Number: FR-009507513-1805FRA014711

PATIENT
  Age: 49 Year
  Sex: Male
  Weight: 55.7 kg

DRUGS (1)
  1. NOXAFIL [Suspect]
     Active Substance: POSACONAZOLE
     Indication: SKIN CANDIDA
     Dosage: 600 MG, QD
     Route: 048
     Dates: start: 20180430, end: 20180504

REACTIONS (2)
  - Drug prescribing error [Recovered/Resolved]
  - Hepatocellular injury [Recovering/Resolving]

NARRATIVE: CASE EVENT DATE: 20180430
